FAERS Safety Report 6668425 (Version 11)
Quarter: 2012Q4

REPORT INFORMATION
  Report Type: 
  Country: US (occurrence: US)
  Receive Date: 20080616
  Receipt Date: 20120926
  Transmission Date: 20130627
  Serious: Yes (Hospitalization, Other)
  Sender: FDA-Public Use
  Company Number: US-ROCHE-552266

PATIENT
  Age: 23 Year
  Sex: Male
  Weight: 117.9 kg

DRUGS (1)
  1. ACCUTANE [Suspect]
     Indication: ACNE
     Route: 065
     Dates: start: 198712, end: 198806

REACTIONS (9)
  - Colitis ulcerative [Unknown]
  - Abdominal sepsis [Recovering/Resolving]
  - Incisional hernia [Unknown]
  - Inflammatory bowel disease [Unknown]
  - Depression [Not Recovered/Not Resolved]
  - Cholecystitis [Unknown]
  - Oesophageal ulcer [Unknown]
  - Anxiety [Unknown]
  - Anaemia [Unknown]
